FAERS Safety Report 5165406-4 (Version None)
Quarter: 2006Q4

REPORT INFORMATION
  Report Type: 
  Country: None (occurrence: None)
  Receive Date: 20061127
  Receipt Date: 20061113
  Transmission Date: 20070319
  Serious: Yes (Other)
  Sender: FDA-Public Use
  Company Number: 2006AP000974

PATIENT
  Sex: Male

DRUGS (1)
  1. SOTALOL HCL [Suspect]
     Dosage: 160 MG; TAB; PO; BID
     Route: 048

REACTIONS (3)
  - ASTHMA [None]
  - CONDITION AGGRAVATED [None]
  - HYPERTHYROIDISM [None]
